FAERS Safety Report 24335399 (Version 1)
Quarter: 2024Q3

REPORT INFORMATION
  Report Type: Spontaneous
  Country: GB (occurrence: GB)
  Receive Date: 20240918
  Receipt Date: 20240918
  Transmission Date: 20241017
  Serious: Yes (Other)
  Sender: PIRAMAL
  Company Number: GB-PCCINC-2024-PPL-000675

PATIENT

DRUGS (2)
  1. ISOFLURANE [Suspect]
     Active Substance: ISOFLURANE
     Indication: Adverse drug reaction
     Dosage: 7-12MG/HOUR 100% ISOFLURANE AS INHALATIONAL SEDATION ON ICU
     Dates: start: 20240903, end: 20240906
  2. ISOFLURANE [Suspect]
     Active Substance: ISOFLURANE
     Indication: Sedation

REACTIONS (2)
  - Electrocardiogram QT prolonged [Recovered/Resolved]
  - Product use in unapproved indication [Unknown]

NARRATIVE: CASE EVENT DATE: 20240904
